FAERS Safety Report 15328179 (Version 1)
Quarter: 2018Q3

REPORT INFORMATION
  Report Type: Spontaneous
  Country: IT (occurrence: IT)
  Receive Date: 20180829
  Receipt Date: 20180829
  Transmission Date: 20181010
  Serious: Yes (Death)
  Sender: FDA-Public Use
  Company Number: IT-ABBVIE-18K-083-2403510-00

PATIENT
  Age: 62 Year
  Sex: Male

DRUGS (4)
  1. VENCLYXTO [Suspect]
     Active Substance: VENETOCLAX
     Dosage: SECOND DAY
     Route: 048
     Dates: start: 201806, end: 201806
  2. VENCLYXTO [Suspect]
     Active Substance: VENETOCLAX
     Indication: ACUTE MYELOID LEUKAEMIA
     Dosage: FIRST DAY
     Route: 048
     Dates: start: 201806, end: 201806
  3. VENCLYXTO [Suspect]
     Active Substance: VENETOCLAX
     Dosage: FROM THIRD DAY
     Route: 048
     Dates: start: 201806
  4. DECITABINE. [Concomitant]
     Active Substance: DECITABINE
     Indication: ACUTE MYELOID LEUKAEMIA
     Dates: start: 201806

REACTIONS (2)
  - Acute myeloid leukaemia [Fatal]
  - Off label use [Not Recovered/Not Resolved]

NARRATIVE: CASE EVENT DATE: 2018
